FAERS Safety Report 23371874 (Version 1)
Quarter: 2024Q1

REPORT INFORMATION
  Report Type: Spontaneous
  Country: CA (occurrence: CA)
  Receive Date: 20240105
  Receipt Date: 20240105
  Transmission Date: 20240409
  Serious: Yes (Hospitalization, Other)
  Sender: FDA-Public Use
  Company Number: CA-FreseniusKabi-FK202400123

PATIENT
  Age: 62 Year
  Sex: Female

DRUGS (15)
  1. HYDROMORPHONE [Suspect]
     Active Substance: HYDROMORPHONE
     Indication: Pain
     Dosage: FREQUENCY: AS REQUIRED?FORM: NOT SPECIFIED
  2. HYDROMORPHONE [Suspect]
     Active Substance: HYDROMORPHONE
     Dosage: 2 REGIMEN?HYDROMORPHONE HYDROCHLORIDE
  3. HYDROMORPHONE [Suspect]
     Active Substance: HYDROMORPHONE
     Dosage: HYDROMORPHONE HYDROCHLORIDE
  4. LEFLUNOMIDE [Suspect]
     Active Substance: LEFLUNOMIDE
     Indication: Rheumatoid arthritis
     Dosage: ROUTE: ORAL?FORM: TABLETS
  5. CELEBREX [Suspect]
     Active Substance: CELECOXIB
     Indication: Rheumatoid arthritis
     Dosage: FORM: CAPSULES?ROUTE: UNKNOWN
  6. ENBREL [Suspect]
     Active Substance: ETANERCEPT
     Indication: Rheumatoid arthritis
     Dosage: ROUTE: SUBCUTANEOUS
  7. LEFLUNOMIDE [Suspect]
     Active Substance: LEFLUNOMIDE
     Indication: Rheumatoid arthritis
     Dosage: ROUTE: ORAL?FORM: NOT SPECIFIED
  8. METHOTREXATE [Suspect]
     Active Substance: METHOTREXATE
     Indication: Rheumatoid arthritis
     Dosage: ROUTE: UNKNOWN
  9. ORENCIA [Suspect]
     Active Substance: ABATACEPT
     Indication: Rheumatoid arthritis
     Dosage: ROUTE: UNKNOWN
  10. REMICADE [Suspect]
     Active Substance: INFLIXIMAB
     Indication: Rheumatoid arthritis
     Dosage: FORM: POWDER FOR SOLUTION INTRAVENOUS?ROUTE: UNKNOWN
  11. REMICADE [Suspect]
     Active Substance: INFLIXIMAB
     Indication: Pain
     Dosage: ROUTE: INTRAVENOUS (NOT OTHERWISE SPECIFIED)
  12. SIMPONI [Suspect]
     Active Substance: GOLIMUMAB
     Indication: Rheumatoid arthritis
     Dosage: FORM: SOLUTION FOR INJECTION?ROUTE: SUBCUTANEOUS
  13. SIMPONI [Suspect]
     Active Substance: GOLIMUMAB
     Indication: Pain
     Dosage: FORM: SOLUTION SUBCUTANEOUS?ROUTE: SUBCUTANEOUS
  14. XELJANZ [Suspect]
     Active Substance: TOFACITINIB CITRATE
     Indication: Rheumatoid arthritis
     Dosage: FORM: TABLET?ROUTE: ORAL?CYCLICAL
  15. XELJANZ [Suspect]
     Active Substance: TOFACITINIB CITRATE
     Indication: Pain
     Dosage: ROUTE: ORAL?FORM: TABLET

REACTIONS (6)
  - Contraindicated product administered [Unknown]
  - Lower respiratory tract infection [Unknown]
  - Nausea [Unknown]
  - Pain in extremity [Unknown]
  - Pneumonia [Unknown]
  - Therapeutic response decreased [Unknown]
